FAERS Safety Report 8559367-5 (Version None)
Quarter: 2012Q3

REPORT INFORMATION
  Report Type: 
  Country: None (occurrence: None)
  Receive Date: 20120802
  Receipt Date: 20120801
  Transmission Date: 20120928
  Serious: Yes (Other)
  Sender: FDA-Public Use
  Company Number: PHHY2012CA050893

PATIENT
  Sex: Male

DRUGS (4)
  1. SANDOSTATIN LAR [Suspect]
     Dosage: 30 MG, UNK
     Route: 030
  2. IRINOTECAN HCL [Concomitant]
  3. SANDOSTATIN LAR [Suspect]
     Dosage: 40 MG EVERY 4 WEEKS
     Route: 030
  4. SANDOSTATIN LAR [Suspect]
     Indication: COLON NEOPLASM
     Dosage: 10 MG, EVERY 3 WEEKS
     Route: 030
     Dates: start: 20120531

REACTIONS (7)
  - DIARRHOEA [None]
  - CLOSTRIDIAL INFECTION [None]
  - INFECTION PARASITIC [None]
  - VOMITING [None]
  - BLOOD PRESSURE DECREASED [None]
  - BLOOD PRESSURE SYSTOLIC INCREASED [None]
  - HYPOVOLAEMIC SHOCK [None]
